FAERS Safety Report 12092758 (Version 1)
Quarter: 2016Q1

REPORT INFORMATION
  Report Type: Spontaneous
  Country: US (occurrence: US)
  Receive Date: 20160219
  Receipt Date: 20160219
  Transmission Date: 20160526
  Serious: No
  Sender: FDA-Public Use
  Company Number: US-BAYER-2016-029036

PATIENT
  Age: 71 Year
  Sex: Female
  Weight: 79.37 kg

DRUGS (2)
  1. ZYRTEC [Concomitant]
     Active Substance: CETIRIZINE HYDROCHLORIDE
  2. ALEVE [Suspect]
     Active Substance: NAPROXEN SODIUM
     Indication: ANALGESIC THERAPY
     Dosage: 6 DF, ONCE DAILY
     Route: 048
     Dates: start: 1999, end: 20160202

REACTIONS (5)
  - Pruritus [None]
  - Dizziness [None]
  - Drug ineffective [None]
  - Blood pressure increased [None]
  - Product use issue [None]

NARRATIVE: CASE EVENT DATE: 20160202
